FAERS Safety Report 15732680 (Version 1)
Quarter: 2018Q4

REPORT INFORMATION
  Report Type: Spontaneous
  Country: US (occurrence: US)
  Receive Date: 20181217
  Receipt Date: 20181217
  Transmission Date: 20190205
  Serious: Yes (Other)
  Sender: FDA-Public Use
  Company Number: US-AMGEN-USASP2018179068

PATIENT
  Sex: Female

DRUGS (4)
  1. NEULASTA [Suspect]
     Active Substance: PEGFILGRASTIM
     Indication: PRODUCT USED FOR UNKNOWN INDICATION
     Dosage: UNK
     Route: 065
     Dates: start: 2015
  2. CLARITIN [Concomitant]
     Active Substance: LORATADINE
     Indication: PAIN PROPHYLAXIS
  3. DOXIL [Suspect]
     Active Substance: DOXORUBICIN HYDROCHLORIDE
     Indication: RECURRENT CANCER
     Dosage: UNK
     Route: 065
     Dates: start: 2018
  4. CARBOPLATIN. [Concomitant]
     Active Substance: CARBOPLATIN
     Indication: RECURRENT CANCER
     Dosage: UNK UNK, CYCLICAL
     Dates: start: 2018

REACTIONS (5)
  - Recurrent cancer [Not Recovered/Not Resolved]
  - Wrong technique in product usage process [Unknown]
  - Device difficult to use [Unknown]
  - Bone pain [Unknown]
  - Pyrexia [Unknown]

NARRATIVE: CASE EVENT DATE: 2015
